FAERS Safety Report 11149182 (Version 5)
Quarter: 2015Q4

REPORT INFORMATION
  Report Type: Spontaneous
  Country: US (occurrence: IT)
  Receive Date: 20150529
  Receipt Date: 20151215
  Transmission Date: 20160304
  Serious: Yes (Other)
  Sender: FDA-Public Use
  Company Number: IT-FRI-1000077020

PATIENT
  Age: 68 Year
  Sex: Male

DRUGS (1)
  1. ASENAPINE [Suspect]
     Active Substance: ASENAPINE
     Indication: BIPOLAR II DISORDER
     Dosage: 5 MG
     Route: 060
     Dates: start: 20140801, end: 20140914

REACTIONS (6)
  - Off label use [Recovered/Resolved]
  - Camptocormia [Recovered/Resolved]
  - Parkinsonism [Recovered/Resolved]
  - Dysphagia [Recovered/Resolved]
  - Speech disorder [Recovered/Resolved]
  - Gait disturbance [Recovered/Resolved]

NARRATIVE: CASE EVENT DATE: 201408
